FAERS Safety Report 8154978-3 (Version None)
Quarter: 2012Q1

REPORT INFORMATION
  Report Type: 
  Country: None (occurrence: None)
  Receive Date: 20120221
  Receipt Date: 20120210
  Transmission Date: 20120608
  Serious: Yes (Other)
  Sender: FDA-Public Use
  Company Number: NL-GE HEALTHCARE MEDICAL DIAGNOSTICS-OMPQ-NO-1202S-0171

PATIENT
  Sex: Female
  Weight: 71 kg

DRUGS (12)
  1. OMNIPAQUE 140 [Suspect]
     Indication: PULMONARY EMBOLISM
     Route: 042
     Dates: start: 20120201, end: 20120201
  2. OMNIPAQUE 140 [Suspect]
     Indication: DIAGNOSTIC PROCEDURE
  3. SPIRIVA RESPIMAT [Concomitant]
  4. ACETAMINOPHEN [Concomitant]
  5. CHLOORTALIDON [Concomitant]
  6. CIPROFLOXACIN HCL [Concomitant]
  7. FLUTICASONE PROPIONATE/SALMETEROL [Concomitant]
  8. PREDNISOLONE [Concomitant]
  9. TEMAZEPAM [Concomitant]
  10. BISACODYL [Concomitant]
  11. PANTOPRAZOLE [Concomitant]
  12. VENLAFAXINE [Concomitant]

REACTIONS (6)
  - LOSS OF CONSCIOUSNESS [None]
  - DIZZINESS [None]
  - VOMITING [None]
  - HEADACHE [None]
  - CONTRAST MEDIA REACTION [None]
  - BLOOD PRESSURE INCREASED [None]
